FAERS Safety Report 23591219 (Version 1)
Quarter: 2024Q1

REPORT INFORMATION
  Report Type: Report from Study
  Country: US (occurrence: US)
  Receive Date: 20240304
  Receipt Date: 20240304
  Transmission Date: 20240409
  Serious: Yes (Disabling, Other)
  Sender: FDA-Public Use
  Company Number: US-ALNYLAM PHARMACEUTICALS, INC.-ALN-2024-001199

PATIENT

DRUGS (1)
  1. GIVLAARI [Suspect]
     Active Substance: GIVOSIRAN SODIUM
     Indication: Product used for unknown indication
     Dosage: 206.75 MILLIGRAM, (189 MILLIGRAM) MONTHLY
     Route: 058
     Dates: start: 20200128, end: 20200128

REACTIONS (7)
  - Disability [Unknown]
  - Renal failure [Unknown]
  - Porphyria acute [Unknown]
  - Diabetes mellitus [Unknown]
  - Illness [Unknown]
  - Weight fluctuation [Unknown]
  - Adverse drug reaction [Unknown]
